FAERS Safety Report 17889453 (Version 1)
Quarter: 2020Q2

REPORT INFORMATION
  Report Type: Spontaneous
  Country: US (occurrence: US)
  Receive Date: 20200612
  Receipt Date: 20200612
  Transmission Date: 20200714
  Serious: No
  Sender: FDA-Public Use
  Company Number: US-TEVA-2020-US-1247192

PATIENT
  Sex: Male
  Weight: 86.18 kg

DRUGS (1)
  1. GABAPENTIN ACTAVIS [Suspect]
     Active Substance: GABAPENTIN
     Indication: NEUROPATHY PERIPHERAL
     Dosage: 800MG; TAKE THREE DAILY BY MOUTH, SOMETIMES TOOK 4
     Route: 048

REACTIONS (2)
  - Drug ineffective [Unknown]
  - Product quality issue [Unknown]
